FAERS Safety Report 6952067-4 (Version None)
Quarter: 2010Q3

REPORT INFORMATION
  Report Type: 
  Country: None (occurrence: None)
  Receive Date: 20100829
  Receipt Date: 20100421
  Transmission Date: 20110219
  Serious: No
  Sender: FDA-Public Use
  Company Number: US-ABBOTT-10P-163-0640898-00

PATIENT
  Sex: Male
  Weight: 83.99 kg

DRUGS (12)
  1. NIASPAN [Suspect]
     Indication: HIGH DENSITY LIPOPROTEIN DECREASED
     Dates: start: 20100301, end: 20100401
  2. NIASPAN [Suspect]
     Dates: start: 20100301, end: 20100301
  3. NIASPAN [Suspect]
     Dates: start: 20100401, end: 20100401
  4. NIASPAN [Suspect]
     Dates: start: 20100401
  5. LISINOPRIL [Suspect]
     Indication: HIGH DENSITY LIPOPROTEIN DECREASED
  6. LISINOPRIL [Suspect]
     Indication: BLOOD TRIGLYCERIDES INCREASED
  7. SIMVASTATIN [Concomitant]
     Indication: HIGH DENSITY LIPOPROTEIN DECREASED
  8. SIMVASTATIN [Concomitant]
     Indication: BLOOD TRIGLYCERIDES INCREASED
  9. METOPROLOL [Concomitant]
     Indication: HIGH DENSITY LIPOPROTEIN DECREASED
     Dates: start: 20100301
  10. METOPROLOL [Concomitant]
     Indication: BLOOD TRIGLYCERIDES INCREASED
  11. PLAVIX [Concomitant]
     Indication: HIGH DENSITY LIPOPROTEIN DECREASED
  12. PLAVIX [Concomitant]
     Indication: BLOOD TRIGLYCERIDES INCREASED

REACTIONS (5)
  - ASTHENIA [None]
  - DYSPNOEA [None]
  - FATIGUE [None]
  - FLUSHING [None]
  - PRURITUS [None]
